FAERS Safety Report 7229860-6 (Version None)
Quarter: 2011Q1

REPORT INFORMATION
  Report Type: 
  Country: None (occurrence: None)
  Receive Date: 20110117
  Receipt Date: 20110105
  Transmission Date: 20110831
  Serious: Yes (Other)
  Sender: FDA-Public Use
  Company Number: PHHY2011ES01157

PATIENT
  Age: 70 Year
  Sex: Female

DRUGS (2)
  1. CIPROFLOXACIN [Suspect]
     Indication: PROTEUS INFECTION
     Dosage: UNK
  2. CIPROFLOXACIN [Suspect]
     Indication: LUNG INFECTION

REACTIONS (8)
  - GASTROINTESTINAL ULCER [None]
  - OEDEMA MUCOSAL [None]
  - MUCOSAL DISCOLOURATION [None]
  - HYPERHIDROSIS [None]
  - ABDOMINAL PAIN [None]
  - MALACOPLAKIA GASTROINTESTINAL [None]
  - VOMITING [None]
  - DIARRHOEA [None]
